FAERS Safety Report 4473636-X (Version None)
Quarter: 2004Q3

REPORT INFORMATION
  Report Type: 
  Country: None (occurrence: None)
  Receive Date: 20040910
  Receipt Date: 20040617
  Transmission Date: 20050211
  Serious: No
  Sender: FDA-Public Use
  Company Number: 2004205635US

PATIENT
  Age: 73 Year
  Sex: Female

DRUGS (11)
  1. BEXTRA [Suspect]
     Indication: ARTHRITIS
     Dosage: 10 MG, UNK, UNK (SEE IMAGE)
     Dates: start: 20040101
  2. CARDIZEM CD [Suspect]
     Indication: BLOOD PRESSURE
     Dosage: 240 MG QD; UNK
     Route: 065
  3. PRAZOSIN HCL [Concomitant]
  4. CARTIA XT [Concomitant]
  5. INSULIN [Concomitant]
  6. ESTROGEN [Concomitant]
  7. CAPTOPRIL [Concomitant]
  8. SYNTHROID [Concomitant]
  9. STOOL SOFTENER (DUCUSATE SODIUM) [Concomitant]
  10. ASPIRIN [Concomitant]
  11. PREMARIN [Concomitant]

REACTIONS (2)
  - ONYCHORRHEXIS [None]
  - TOOTHACHE [None]
